FAERS Safety Report 11533967 (Version 1)
Quarter: 2015Q3

REPORT INFORMATION
  Report Type: Spontaneous
  Country: BR (occurrence: BR)
  Receive Date: 20150922
  Receipt Date: 20150922
  Transmission Date: 20151125
  Serious: Yes (Other)
  Sender: FDA-Public Use
  Company Number: BR-PFIZER INC-2015273890

PATIENT
  Age: 52 Year
  Sex: Female
  Weight: 97 kg

DRUGS (8)
  1. LYRICA [Suspect]
     Active Substance: PREGABALIN
     Indication: PAIN
     Dosage: 75 MG (1 CAPSULE) DAILY
     Route: 048
     Dates: start: 20150801, end: 20150803
  2. OLMETEC [Concomitant]
     Active Substance: OLMESARTAN MEDOXOMIL
     Indication: BLOOD PRESSURE MEASUREMENT
     Dosage: 1 TABLET [40 MG OLMESARTAN MEDOXOMIL] / [12.5 MG HYDROCHLOROTHIAZIDE], DAILY
     Dates: start: 2010
  3. HYALURONIC ACID [Concomitant]
     Active Substance: HYALURONIC ACID
     Indication: PAIN
     Dosage: UNSPECIFIED DOSE, 1X/DAY
     Dates: start: 201505
  4. HYALURONIC ACID [Concomitant]
     Active Substance: HYALURONIC ACID
     Indication: MOBILITY DECREASED
  5. CLONAZEPAM. [Concomitant]
     Active Substance: CLONAZEPAM
     Indication: DEPRESSION
     Dosage: 1 TABLET, DAILY
     Dates: start: 2005
  6. FLUOXETINE [Concomitant]
     Active Substance: FLUOXETINE\FLUOXETINE HYDROCHLORIDE
     Indication: DEPRESSION
     Dosage: 2 (UNSPECIFIED UNIT) PER DAY
     Dates: start: 2005
  7. DAFLON [Concomitant]
     Active Substance: DIOSMIN\HESPERIDIN
     Indication: COLLATERAL CIRCULATION
     Dosage: 2 TABLETS, DAILY
     Dates: start: 2005
  8. OLMETEC [Concomitant]
     Active Substance: OLMESARTAN MEDOXOMIL
     Indication: BLOOD PRESSURE ABNORMAL
     Dosage: UNK

REACTIONS (10)
  - Pain [Unknown]
  - Dizziness [Unknown]
  - Limb discomfort [Unknown]
  - Hypersensitivity [Unknown]
  - Condition aggravated [Unknown]
  - Rash [Unknown]
  - Feeling abnormal [Unknown]
  - Arthralgia [Unknown]
  - Abasia [Unknown]
  - Face injury [Unknown]

NARRATIVE: CASE EVENT DATE: 201508
